FAERS Safety Report 6916689-9 (Version None)
Quarter: 2010Q3

REPORT INFORMATION
  Report Type: 
  Country: None (occurrence: None)
  Receive Date: 20100810
  Receipt Date: 20100726
  Transmission Date: 20110219
  Serious: Yes (Other)
  Sender: FDA-Public Use
  Company Number: IL-ROCHE-719451

PATIENT
  Age: 60 Year
  Sex: Female
  Weight: 52 kg

DRUGS (4)
  1. ORLISTAT [Suspect]
     Indication: WEIGHT CONTROL
     Route: 065
     Dates: start: 20050101
  2. FUROSEMIDE [Suspect]
     Indication: PRODUCT USED FOR UNKNOWN INDICATION
     Route: 065
  3. FUROSEMIDE [Suspect]
     Route: 065
  4. ETORICOXIB [Suspect]
     Indication: ARTHRITIS
     Route: 048

REACTIONS (2)
  - MONARTHRITIS [None]
  - RENAL FAILURE ACUTE [None]
